FAERS Safety Report 17352506 (Version 1)
Quarter: 2020Q1

REPORT INFORMATION
  Report Type: Spontaneous
  Country: GB (occurrence: GB)
  Receive Date: 20200131
  Receipt Date: 20200131
  Transmission Date: 20200409
  Serious: Yes (Other)
  Sender: FDA-Public Use
  Company Number: GB-TEVA-2020-GB-1177145

PATIENT
  Age: 70 Year
  Sex: Male
  Weight: 82 kg

DRUGS (9)
  1. DIHYDROCODEINE [Concomitant]
     Active Substance: DIHYDROCODEINE
  2. COCODAMOL [Suspect]
     Active Substance: ACETAMINOPHEN\CODEINE PHOSPHATE
     Dosage: 30/500
     Route: 065
  3. PARACETAMOL [Suspect]
     Active Substance: ACETAMINOPHEN
     Indication: ANALGESIC THERAPY
     Dosage: 500 MG, UP TO 2 CAPLETS 4 TIMES A DAY
     Route: 048
     Dates: start: 20190206
  4. RAMIPRIL. [Concomitant]
     Active Substance: RAMIPRIL
  5. WARFARIN [Concomitant]
     Active Substance: WARFARIN
  6. XATRAL SR [Concomitant]
     Active Substance: ALFUZOSIN
  7. LANSOPRAZOLE. [Concomitant]
     Active Substance: LANSOPRAZOLE
  8. TRAMADOL. [Concomitant]
     Active Substance: TRAMADOL
  9. FLECAINIDE ACETATE. [Concomitant]
     Active Substance: FLECAINIDE ACETATE

REACTIONS (3)
  - Respiratory tract congestion [Recovered/Resolved with Sequelae]
  - Catarrh [Recovered/Resolved with Sequelae]
  - Cough [Recovered/Resolved with Sequelae]
